FAERS Safety Report 25847245 (Version 2)
Quarter: 2025Q4

REPORT INFORMATION
  Report Type: Report from Study
  Country: CA (occurrence: CA)
  Receive Date: 20250925
  Receipt Date: 20251014
  Transmission Date: 20260117
  Serious: Yes (Other)
  Sender: ALEXION PHARMACEUTICALS
  Company Number: CA-AstraZeneca-CH-00906987A

PATIENT
  Sex: Female
  Weight: 58.06 kg

DRUGS (5)
  1. CAPIVASERTIB [Suspect]
     Active Substance: CAPIVASERTIB
     Indication: Breast cancer metastatic
     Dosage: 320 MILLIGRAM, BID
     Dates: start: 20250425
  2. CAPIVASERTIB [Suspect]
     Active Substance: CAPIVASERTIB
     Dosage: 320 MILLIGRAM, BID
     Dates: start: 20250425
  3. CAPIVASERTIB [Suspect]
     Active Substance: CAPIVASERTIB
     Dosage: 1 TABLET DAILY
     Dates: start: 20250425
  4. FASLODEX [Suspect]
     Active Substance: FULVESTRANT
     Indication: Breast cancer metastatic
     Dosage: 500 MILLIGRAM, Q4W
     Dates: start: 20250425
  5. FASLODEX [Suspect]
     Active Substance: FULVESTRANT

REACTIONS (6)
  - Gastrointestinal toxicity [Unknown]
  - Drug ineffective [Recovered/Resolved]
  - Diarrhoea [Unknown]
  - Abdominal pain upper [Unknown]
  - Intentional product misuse [Unknown]
  - Off label use [Unknown]
